FAERS Safety Report 5323287-X (Version None)
Quarter: 2007Q2

REPORT INFORMATION
  Report Type: 
  Country: None (occurrence: None)
  Receive Date: 20070220
  Receipt Date: 20061129
  Transmission Date: 20071010
  Serious: No
  Sender: FDA-Public Use
  Company Number: WAES 0611USA07578

PATIENT
  Sex: Female

DRUGS (2)
  1. JANUVIA [Suspect]
     Indication: GLUCOSE TOLERANCE IMPAIRED
     Dosage: 100 MG/DAILY/PO
     Route: 048
     Dates: start: 20061115, end: 20061115
  2. HERBS [Concomitant]

REACTIONS (2)
  - HYPOAESTHESIA [None]
  - SENSATION OF HEAVINESS [None]
